FAERS Safety Report 24031263 (Version 2)
Quarter: 2024Q3

REPORT INFORMATION
  Report Type: Report from Study
  Country: US (occurrence: US)
  Receive Date: 20240629
  Receipt Date: 20240913
  Transmission Date: 20241017
  Serious: Yes (Other)
  Sender: ABBVIE
  Company Number: US-ABBVIE-5818700

PATIENT
  Age: 64 Year
  Sex: Female
  Weight: 98.883 kg

DRUGS (11)
  1. RINVOQ [Suspect]
     Active Substance: UPADACITINIB
     Indication: Rheumatoid arthritis
     Dosage: FORM STRENGTH: 15 MG, EXTENDED RELEASE, DRUG END DATE-NOV 2023
     Route: 048
     Dates: start: 20231115
  2. RINVOQ [Suspect]
     Active Substance: UPADACITINIB
     Indication: Rheumatoid arthritis
     Dosage: FORM STRENGTH: 15 MG
     Route: 048
     Dates: start: 20240416
  3. ELAVIL [Concomitant]
     Active Substance: AMITRIPTYLINE HYDROCHLORIDE
     Indication: Product used for unknown indication
     Dosage: FORM STRENGH-50 MILLIGRAM, 1 TABLET BY MOUTH NIGHTLY
  4. COLLAGEN [Concomitant]
     Active Substance: COLLAGEN
     Indication: Product used for unknown indication
     Dosage: 3,000 MG BY MOUTH DAILY
     Route: 048
  5. FOLVITE [Concomitant]
     Active Substance: FOLIC ACID
     Indication: Rheumatoid arthritis
     Dosage: FORM STRENGTH-1 MG, 2 TABLETS BY MOUTH EVERY DAY
  6. NEURONTIN [Concomitant]
     Active Substance: GABAPENTIN
     Indication: Lumbar spinal stenosis
     Dosage: FORM STRENGTH-400 MG, 1 CAPSULE BY MOUTH EVERY MORNING (BEFORE BREAKFAST) AND 2 CAPSULES NIGHTLY....
  7. HYDRODIURIL [Concomitant]
     Active Substance: HYDROCHLOROTHIAZIDE
     Indication: Product used for unknown indication
     Dosage: FORM STRENGTH-25 MG, 1 TABLET BY MOUTH DAILY
  8. Cozaa [Concomitant]
     Indication: Product used for unknown indication
     Dosage: FROM STRENGTH-10 MG,  1 TABLET BY MOUTH DAILY
  9. MOBIC [Concomitant]
     Active Substance: MELOXICAM
     Indication: Product used for unknown indication
     Dosage: FORM STRENGTH-15 MG, TAKE 1 TABLET BY MOUTH DAILY
  10. METHOTREXATE SODIUM [Concomitant]
     Active Substance: METHOTREXATE SODIUM
     Indication: Rheumatoid arthritis
     Dosage: FORM STRENGTH- 50 MG/2ML CHEMO INJECTION, 0.6 MLS INTO THE SKIN ONCE A WEEK
  11. CYANOCOBALAMIN [Concomitant]
     Active Substance: CYANOCOBALAMIN
     Indication: Product used for unknown indication
     Dosage: FORM STRENGTH-100 MCG, 10 TABLETS BY MOUTH DAILY

REACTIONS (1)
  - Knee arthroplasty [Unknown]

NARRATIVE: CASE EVENT DATE: 20240402
